FAERS Safety Report 9781652 (Version 2)
Quarter: 2013Q4

REPORT INFORMATION
  Report Type: Spontaneous
  Country: US (occurrence: US)
  Receive Date: 20131224
  Receipt Date: 20131231
  Transmission Date: 20140711
  Serious: Yes (Other)
  Sender: FDA-Public Use
  Company Number: CHPA2013US018556

PATIENT
  Age: 75 Year
  Sex: Male

DRUGS (7)
  1. ACETYLSALICYLIC ACID [Suspect]
     Dosage: UNK, UNK
  2. NAPROXEN TABLETS USP [Suspect]
     Dosage: UNK
  3. ANTICOAGULANTS [Suspect]
     Dosage: UNK
  4. CLOBETASOL 0.05% [Concomitant]
     Indication: ALOPECIA
     Dosage: UNK
  5. KETOCONAZOLE [Concomitant]
     Indication: ALOPECIA
     Dosage: UNK
  6. CLINDAMYCIN PHOSPHATE [Concomitant]
     Indication: ALOPECIA
     Dosage: UNK
  7. MINOXIDIL [Concomitant]
     Indication: ALOPECIA
     Dosage: UNK

REACTIONS (2)
  - Bone disorder [Not Recovered/Not Resolved]
  - Haemorrhage [Recovering/Resolving]
